FAERS Safety Report 14524197 (Version 1)
Quarter: 2018Q1

REPORT INFORMATION
  Report Type: Spontaneous
  Country: CA (occurrence: CA)
  Receive Date: 20180213
  Receipt Date: 20180213
  Transmission Date: 20180509
  Serious: Yes (Hospitalization)
  Sender: FDA-Public Use
  Company Number: CA-BRISTOL-MYERS SQUIBB COMPANY-BMS-2018-010594

PATIENT
  Age: 83 Year
  Sex: Female

DRUGS (1)
  1. HYDREA [Suspect]
     Active Substance: HYDROXYUREA
     Indication: PLATELET COUNT INCREASED
     Dosage: 1000 MG, QD
     Route: 048
     Dates: start: 2004

REACTIONS (3)
  - Dry skin [Unknown]
  - Product use in unapproved indication [Unknown]
  - Blister [Unknown]
